FAERS Safety Report 15742030 (Version 3)
Quarter: 2019Q4

REPORT INFORMATION
  Report Type: Report from Study
  Country: CO (occurrence: CO)
  Receive Date: 20181219
  Receipt Date: 20191226
  Transmission Date: 20200122
  Serious: Yes (Hospitalization)
  Sender: FDA-Public Use
  Company Number: CO-ASTELLAS-2018US035435

PATIENT
  Age: 31 Year
  Sex: Female
  Weight: 48 kg

DRUGS (9)
  1. TACROLIMUS. [Suspect]
     Active Substance: TACROLIMUS
     Indication: RENAL TRANSPLANT
     Dosage: 6 MG, ONCE DAILY (CAPSULE OF 5 MG AND 1 CAPSULE OF 1 MG)
     Route: 048
     Dates: start: 20180529
  2. VALGANCICLOVIR. [Concomitant]
     Active Substance: VALGANCICLOVIR
     Indication: TRANSPLANT
     Route: 048
     Dates: start: 20181212
  3. DILTIAZEM. [Concomitant]
     Active Substance: DILTIAZEM
     Indication: BLOOD PRESSURE MEASUREMENT
     Dosage: UNK UNK, ONCE DAILY
     Route: 048
     Dates: start: 20180529
  4. TACROLIMUS. [Suspect]
     Active Substance: TACROLIMUS
     Dosage: 4 MG, ONCE DAILY (4 CAPSULE OF 1 MG)
     Route: 048
  5. MYCOPHENOLATE [Concomitant]
     Active Substance: MYCOPHENOLIC ACID
     Indication: RENAL TRANSPLANT
     Route: 048
     Dates: start: 20180529
  6. TACROLIMUS. [Suspect]
     Active Substance: TACROLIMUS
     Dosage: 4 MG, ONCE DAILY (TACROLIMUS 1 CAPSULE OF 3 MG AND 1CAPSULE OF 1 MG)
     Route: 048
     Dates: end: 20191128
  7. TACROLIMUS. [Suspect]
     Active Substance: TACROLIMUS
     Dosage: 3 MG, ONCE DAILY (TACROLIMUS 1 CAPSULE OF 3 MG)
     Route: 048
     Dates: start: 20191129
  8. PREDNISOLONE. [Concomitant]
     Active Substance: PREDNISOLONE
     Indication: TRANSPLANT
     Route: 048
     Dates: start: 20180529
  9. MYCOPHENOLATE [Concomitant]
     Active Substance: MYCOPHENOLIC ACID
     Route: 048
     Dates: start: 20180529

REACTIONS (7)
  - Headache [Not Recovered/Not Resolved]
  - Product supply issue [Unknown]
  - Incorrect dose administered [Unknown]
  - Malnutrition [Recovering/Resolving]
  - Tremor [Not Recovered/Not Resolved]
  - Diarrhoea [Not Recovered/Not Resolved]
  - Diarrhoea [Recovering/Resolving]

NARRATIVE: CASE EVENT DATE: 20181205
